FAERS Safety Report 7748187-7 (Version None)
Quarter: 2011Q3

REPORT INFORMATION
  Report Type: 
  Country: None (occurrence: None)
  Receive Date: 20110913
  Receipt Date: 20110907
  Transmission Date: 20111222
  Serious: Yes (Other)
  Sender: FDA-Public Use
  Company Number: US-ABBOTT-11P-163-0852870-00

PATIENT
  Age: 59 Year
  Sex: Female

DRUGS (15)
  1. NEBULIZER [Concomitant]
     Indication: RESPIRATORY TRACT CONGESTION
  2. HUMIRA [Suspect]
     Dates: start: 20110301, end: 20110401
  3. HUMIRA [Suspect]
     Dates: start: 20110601, end: 20110701
  4. METHOTREXATE [Concomitant]
     Indication: PRODUCT USED FOR UNKNOWN INDICATION
  5. LEVOXYL [Concomitant]
     Indication: PRODUCT USED FOR UNKNOWN INDICATION
  6. HYDROCHLOROTHIAZIDE [Concomitant]
     Indication: PRODUCT USED FOR UNKNOWN INDICATION
  7. FOLIC ACID [Concomitant]
     Indication: PRODUCT USED FOR UNKNOWN INDICATION
  8. NORCO [Concomitant]
     Indication: PAIN
     Dosage: 10/325 MG
  9. ZOCOR [Concomitant]
     Indication: PRODUCT USED FOR UNKNOWN INDICATION
     Dosage: AT NIGHT
  10. CELEBREX [Concomitant]
     Indication: PRODUCT USED FOR UNKNOWN INDICATION
  11. XANAX [Concomitant]
     Indication: PANIC ATTACK
  12. HUMIRA [Suspect]
     Indication: RHEUMATOID ARTHRITIS
     Dates: start: 20090101, end: 20110101
  13. OMEGA [Concomitant]
     Indication: PRODUCT USED FOR UNKNOWN INDICATION
     Dosage: 2/200MG DAILY
  14. CALCIUM WITH VITAMIN D [Concomitant]
     Indication: PRODUCT USED FOR UNKNOWN INDICATION
     Dosage: DAILY
  15. HUMIRA [Suspect]
     Dates: start: 20110801

REACTIONS (6)
  - INJECTION SITE PAIN [None]
  - URINARY TRACT INFECTION [None]
  - CATHETERISATION CARDIAC [None]
  - ARTHROSCOPY [None]
  - BRONCHITIS [None]
  - INJECTION SITE VESICLES [None]
